FAERS Safety Report 10768495 (Version 2)
Quarter: 2015Q4

REPORT INFORMATION
  Report Type: Other
  Country: US (occurrence: US)
  Receive Date: 20150206
  Receipt Date: 20151019
  Transmission Date: 20160304
  Serious: Yes (Other)
  Sender: FDA-Public Use
  Company Number: US-ACORDA-ACO_104283_2014

PATIENT
  Sex: Male

DRUGS (1)
  1. AMPYRA [Suspect]
     Active Substance: DALFAMPRIDINE
     Indication: MULTIPLE SCLEROSIS
     Dosage: 10 MG, BID
     Route: 048
     Dates: start: 20110209

REACTIONS (5)
  - Eructation [Unknown]
  - Abdominal pain upper [Unknown]
  - Gallbladder disorder [Recovered/Resolved]
  - Insomnia [Unknown]
  - Dyspepsia [Unknown]
